FAERS Safety Report 4523017-5 (Version None)
Quarter: 2004Q4

REPORT INFORMATION
  Report Type: 
  Country: None (occurrence: None)
  Receive Date: 20041208
  Receipt Date: 20041117
  Transmission Date: 20050328
  Serious: Yes (Hospitalization, Other)
  Sender: FDA-Public Use
  Company Number: 2004095904

PATIENT
  Sex: Female

DRUGS (7)
  1. LIPITOR [Suspect]
     Indication: ILL-DEFINED DISORDER
  2. FOSINOPRIL SODIUM [Concomitant]
  3. DILTAZEM HYDROCHLORIDE (DILTAZEM HYDROCHLORIDE) [Concomitant]
  4. TIBOLONE (TIBOLONE) [Concomitant]
  5. PANTOPRAZOLE SODIUM [Concomitant]
  6. CALCIUM CARBONATE (CALCIUM CARBONATE) [Concomitant]
  7. GLUCOSAMINE (GLUCOSAMINE) [Concomitant]

REACTIONS (7)
  - ASTHENIA [None]
  - BIOPSY MUSCLE ABNORMAL [None]
  - LIVER FUNCTION TEST ABNORMAL [None]
  - MUSCLE ATROPHY [None]
  - MUSCLE CRAMP [None]
  - MUSCULAR WEAKNESS [None]
  - MYALGIA [None]
